FAERS Safety Report 18163038 (Version 1)
Quarter: 2020Q3

REPORT INFORMATION
  Report Type: Spontaneous
  Country: ES (occurrence: ES)
  Receive Date: 20200818
  Receipt Date: 20200818
  Transmission Date: 20201103
  Serious: Yes (Other)
  Sender: FDA-Public Use
  Company Number: ES-SUN PHARMACEUTICAL INDUSTRIES LTD-2020RR-258036

PATIENT
  Age: 82 Year
  Sex: Female
  Weight: 70 kg

DRUGS (2)
  1. RADIOYODO (80 A 100 MCII31) [Suspect]
     Active Substance: IODINE I-131
     Indication: THYROID NEOPLASM
     Dosage: UNK
     Route: 065
     Dates: start: 20190909
  2. LOSARTAN AND HYDROCHLOROTHIAZIDE [Suspect]
     Active Substance: HYDROCHLOROTHIAZIDE\LOSARTAN POTASSIUM
     Indication: HYPERTENSION
     Dosage: UNK
     Route: 048
     Dates: start: 20121218

REACTIONS (1)
  - Pancreatitis [Recovered/Resolved]

NARRATIVE: CASE EVENT DATE: 20190912
